FAERS Safety Report 13949481 (Version 1)
Quarter: 2017Q3

REPORT INFORMATION
  Report Type: Spontaneous
  Country: US (occurrence: US)
  Receive Date: 20170908
  Receipt Date: 20170908
  Transmission Date: 20171128
  Serious: No
  Sender: FDA-Public Use
  Company Number: US-JAZZ-2017-US-007913

PATIENT
  Age: 26 Year
  Sex: Female

DRUGS (13)
  1. XYREM [Suspect]
     Active Substance: SODIUM OXYBATE
     Indication: CATAPLEXY
     Dosage: 3G, BID
     Route: 048
     Dates: start: 201702
  2. FISH OIL CONCENTRATE [Concomitant]
     Active Substance: FISH OIL
  3. CLONAZEPAM. [Concomitant]
     Active Substance: CLONAZEPAM
  4. PROVIGIL [Concomitant]
     Active Substance: MODAFINIL
  5. XYREM [Suspect]
     Active Substance: SODIUM OXYBATE
     Indication: NARCOLEPSY
     Dosage: 2.25G, BID
     Route: 048
     Dates: start: 201611, end: 201702
  6. 5-HTP                              /00439301/ [Concomitant]
     Active Substance: OXITRIPTAN
  7. DERMOPLEX CALAMINE [Concomitant]
  8. PROBIOTIC                          /06395501/ [Concomitant]
     Active Substance: BIFIDOBACTERIUM ANIMALIS LACTIS
  9. OXTELLAR [Concomitant]
  10. OASIS TEARS [Concomitant]
     Active Substance: GLYCERIN
  11. LEXAPRO [Concomitant]
     Active Substance: ESCITALOPRAM OXALATE
  12. NASACORT ALLERGY 24HR [Concomitant]
     Active Substance: TRIAMCINOLONE ACETONIDE
  13. SPARK                              /01281401/ [Concomitant]

REACTIONS (18)
  - Toothache [Unknown]
  - Therapeutic response unexpected [Unknown]
  - Blood sodium abnormal [Unknown]
  - Milk allergy [Not Recovered/Not Resolved]
  - Paraesthesia [Not Recovered/Not Resolved]
  - Anxiety [Not Recovered/Not Resolved]
  - Vitamin D decreased [Unknown]
  - Depression [Unknown]
  - Pre-existing condition improved [Unknown]
  - Gluten sensitivity [Not Recovered/Not Resolved]
  - Contrast media allergy [Not Recovered/Not Resolved]
  - Dehydration [Unknown]
  - Blood pressure decreased [Unknown]
  - Learning disability [Not Recovered/Not Resolved]
  - Influenza [Unknown]
  - Palpitations [Unknown]
  - Weight decreased [Not Recovered/Not Resolved]
  - Muscle spasms [Not Recovered/Not Resolved]

NARRATIVE: CASE EVENT DATE: 201706
